FAERS Safety Report 18365347 (Version 1)
Quarter: 2020Q4

REPORT INFORMATION
  Report Type: Spontaneous
  Country: US (occurrence: US)
  Receive Date: 20201009
  Receipt Date: 20201009
  Transmission Date: 20210114
  Serious: No
  Sender: FDA-Public Use
  Company Number: None

PATIENT
  Age: 62 Year
  Sex: Male
  Weight: 122.6 kg

DRUGS (11)
  1. ENOXAPARIN 40MG SUBQ Q12H [Concomitant]
     Dates: start: 20201005, end: 20201009
  2. TAMSULOSIN 0.4MG PO QDAY [Concomitant]
     Dates: start: 20201006, end: 20201009
  3. DOXYCYCLINE 100MG IV ONCE [Concomitant]
     Dates: start: 20201005, end: 20201005
  4. CEFTRIAXONE 1GM IV Q24H [Concomitant]
     Dates: start: 20201005, end: 20201009
  5. REMDESIVIR. [Suspect]
     Active Substance: REMDESIVIR
     Indication: COVID-19
     Route: 042
     Dates: start: 20201006, end: 20201009
  6. AZITHROMYCIN 500MG TABLET [Concomitant]
     Active Substance: AZITHROMYCIN
     Dates: start: 20201005, end: 20201009
  7. LOSARTAN 50MG PO DAILY [Concomitant]
     Dates: start: 20201006, end: 20201009
  8. DEXAMETHASONE 4MG IV Q6H [Concomitant]
     Dates: start: 20201005, end: 20201009
  9. FAMOTIDINE 20MG PO BID [Concomitant]
     Dates: start: 20201005, end: 20201009
  10. FINASTERIDE 5MG TABLET PO QDAY [Concomitant]
     Dates: start: 20201006, end: 20201009
  11. HCTZ 12.5MG PO QDAY [Concomitant]
     Dates: start: 20201006, end: 20201009

REACTIONS (1)
  - Alanine aminotransferase increased [None]

NARRATIVE: CASE EVENT DATE: 20201009
